FAERS Safety Report 9371941 (Version 2)
Quarter: 2013Q3

REPORT INFORMATION
  Report Type: Spontaneous
  Country: NO (occurrence: None)
  Receive Date: 20130625
  Receipt Date: 20130711
  Transmission Date: 20140515
  Serious: Yes (Death)
  Sender: FDA-Public Use
  Company Number: SWE-LIT-2013001

PATIENT
  Sex: Male
  Weight: 4.5 kg

DRUGS (4)
  1. CARBAGLU (CARGLUMIC ACID) [Suspect]
     Indication: ORNITHINE TRANSCARBAMOYLASE DEFICIENCY
     Route: 048
  2. SODIUM BENZOATE [Concomitant]
  3. SODIUM PHENHYLBUTYRATE [Concomitant]
  4. ARGININE CHLORIDE [Concomitant]

REACTIONS (11)
  - General physical health deterioration [None]
  - Respiratory disorder [None]
  - Arrhythmia [None]
  - Cerebral disorder [None]
  - Hyperventilation [None]
  - Metabolic acidosis [None]
  - Anxiety [None]
  - Poisoning [None]
  - Respiratory alkalosis [None]
  - Muscle rigidity [None]
  - Irritability [None]
